FAERS Safety Report 15367212 (Version 1)
Quarter: 2018Q3

REPORT INFORMATION
  Report Type: Report from Study
  Country: MX (occurrence: MX)
  Receive Date: 20180910
  Receipt Date: 20180910
  Transmission Date: 20181010
  Serious: Yes (Hospitalization)
  Sender: FDA-Public Use
  Company Number: PHHY2018MX078298

PATIENT
  Sex: Female
  Weight: 58 kg

DRUGS (1)
  1. ENTRESTO [Suspect]
     Active Substance: SACUBITRIL\VALSARTAN
     Indication: CARDIAC DISORDER
     Dosage: 2 DF, QD, STARTED APPROXIMATELY 1 YEAR BACK
     Route: 048

REACTIONS (5)
  - Renal failure [Not Recovered/Not Resolved]
  - Blood glucose increased [Recovering/Resolving]
  - Cardiac failure [Not Recovered/Not Resolved]
  - Blood pressure fluctuation [Recovering/Resolving]
  - Product use in unapproved indication [Unknown]
